FAERS Safety Report 7877361-4 (Version None)
Quarter: 2011Q4

REPORT INFORMATION
  Report Type: 
  Country: None (occurrence: None)
  Receive Date: 20111031
  Receipt Date: 20111018
  Transmission Date: 20120403
  Serious: Yes (Other)
  Sender: FDA-Public Use
  Company Number: CA-ELI_LILLY_AND_COMPANY-CA201110004470

PATIENT
  Sex: Male

DRUGS (3)
  1. ZYPREXA [Suspect]
     Dosage: 5 MG, UNK
     Dates: start: 19981210
  2. ZYPREXA [Suspect]
     Dosage: 7.5 MG, UNK
  3. ZYPREXA [Suspect]
     Dosage: 10 MG, UNK

REACTIONS (3)
  - RENAL FAILURE CHRONIC [None]
  - TYPE 2 DIABETES MELLITUS [None]
  - ANAEMIA [None]
